FAERS Safety Report 10078574 (Version 2)
Quarter: 2014Q2

REPORT INFORMATION
  Report Type: Report from Study
  Country: DE (occurrence: DE)
  Receive Date: 20140415
  Receipt Date: 20140415
  Transmission Date: 20141212
  Serious: Yes (Hospitalization)
  Sender: FDA-Public Use
  Company Number: DE-ROCHE-1127174

PATIENT
  Age: 48 Year
  Sex: Female
  Weight: 76 kg

DRUGS (8)
  1. TRASTUZUMAB EMTANSINE [Suspect]
     Indication: BREAST CANCER
     Dosage: DATE OF LAST DOSE - 07/SEP/2012
     Route: 042
     Dates: start: 20111026
  2. BLINDED PERTUZUMAB [Suspect]
     Indication: BREAST CANCER
     Dosage: DATE OF LAST DOSE-07/SEP/2012
     Route: 042
     Dates: start: 20111026
  3. DEXAMETHASONE [Concomitant]
     Indication: PREMEDICATION
     Route: 065
     Dates: start: 20111116
  4. RANITIDIN [Concomitant]
     Indication: PREMEDICATION
     Route: 065
     Dates: start: 20111026
  5. CLEMASTIN [Concomitant]
     Indication: PREMEDICATION
     Route: 065
     Dates: start: 20111026
  6. GLANDOMED [Concomitant]
     Indication: MUCOSAL INFLAMMATION
     Route: 065
     Dates: start: 20111207
  7. ZOFRAN [Concomitant]
     Indication: PROPHYLAXIS
     Route: 065
     Dates: start: 20111116
  8. EMEND [Concomitant]
     Indication: PROPHYLAXIS
     Route: 065
     Dates: start: 20120118

REACTIONS (1)
  - Cholecystitis [Recovered/Resolved]
